FAERS Safety Report 9439171 (Version 1)
Quarter: 2013Q3

REPORT INFORMATION
  Report Type: Spontaneous
  Country: US (occurrence: US)
  Receive Date: 20130802
  Receipt Date: 20130802
  Transmission Date: 20140515
  Serious: No
  Sender: FDA-Public Use
  Company Number: US-009507513-1307USA016508

PATIENT
  Age: 30 Year
  Sex: Female
  Weight: 115.19 kg

DRUGS (1)
  1. IMPLANON [Suspect]
     Indication: CONTRACEPTION
     Dosage: 1 ROD
     Route: 059
     Dates: start: 201201

REACTIONS (2)
  - Menstruation irregular [Recovered/Resolved]
  - Device breakage [Recovered/Resolved]
